FAERS Safety Report 16894385 (Version 2)
Quarter: 2020Q4

REPORT INFORMATION
  Report Type: Spontaneous
  Country: US (occurrence: US)
  Receive Date: 20191008
  Receipt Date: 20201008
  Transmission Date: 20210113
  Serious: No
  Sender: FDA-Public Use
  Company Number: US-INDIVIOR US-INDV-113826-2018

PATIENT
  Age: 75 Year
  Sex: Female

DRUGS (5)
  1. SUBOXONE [Suspect]
     Active Substance: BUPRENORPHINE HYDROCHLORIDE\NALOXONE HYDROCHLORIDE
     Indication: DRUG DEPENDENCE
     Dosage: 4 MG, UNK
     Route: 060
     Dates: start: 2018, end: 2018
  2. SUBOXONE [Suspect]
     Active Substance: BUPRENORPHINE HYDROCHLORIDE\NALOXONE HYDROCHLORIDE
     Indication: DRUG DEPENDENCE
     Dosage: 8 MG, BID
     Route: 060
     Dates: start: 2018, end: 2018
  3. SUBOXONE [Suspect]
     Active Substance: BUPRENORPHINE HYDROCHLORIDE\NALOXONE HYDROCHLORIDE
     Dosage: QUARTER OF 2 MG FILM
     Route: 060
  4. SUBOXONE [Suspect]
     Active Substance: BUPRENORPHINE HYDROCHLORIDE\NALOXONE HYDROCHLORIDE
     Indication: DRUG DEPENDENCE
     Dosage: 2 MILLIGGRAM, QD
     Route: 060
     Dates: start: 2018
  5. ACETAMINOPHEN. [Concomitant]
     Active Substance: ACETAMINOPHEN
     Indication: PRODUCT USED FOR UNKNOWN INDICATION
     Dosage: UNK
     Route: 065

REACTIONS (6)
  - Blood pressure decreased [Unknown]
  - Candida infection [Unknown]
  - Inappropriate schedule of product administration [Recovered/Resolved]
  - Wrong technique in product usage process [Not Recovered/Not Resolved]
  - Intentional underdose [Not Recovered/Not Resolved]
  - Oral administration complication [Unknown]

NARRATIVE: CASE EVENT DATE: 2018
